FAERS Safety Report 25615187 (Version 2)
Quarter: 2025Q3

REPORT INFORMATION
  Report Type: Report from Study
  Country: EU (occurrence: EU)
  Receive Date: 20250729
  Receipt Date: 20250823
  Transmission Date: 20251020
  Serious: Yes (Death)
  Sender: CSL BEHRING
  Company Number: EU-BEH-2025214093

PATIENT
  Age: 90 Year
  Sex: Male

DRUGS (1)
  1. KORSUVA [Suspect]
     Active Substance: DIFELIKEFALIN ACETATE
     Indication: Chronic kidney disease-associated pruritus
     Route: 042
     Dates: start: 20240716, end: 20250507

REACTIONS (1)
  - Renal replacement therapy [Fatal]

NARRATIVE: CASE EVENT DATE: 20250514
